FAERS Safety Report 7979889-5 (Version None)
Quarter: 2011Q4

REPORT INFORMATION
  Report Type: 
  Country: None (occurrence: None)
  Receive Date: 20111214
  Receipt Date: 20111205
  Transmission Date: 20120403
  Serious: Yes (Other)
  Sender: FDA-Public Use
  Company Number: JP-ASTRAZENECA-2011SE74859

PATIENT
  Sex: Male

DRUGS (2)
  1. ZOLADEX [Suspect]
     Dosage: DOSE UNKNOWN
     Route: 058
  2. CASODEX [Suspect]
     Dosage: DOSE UNKNOWN
     Route: 048

REACTIONS (1)
  - CEREBRAL INFARCTION [None]
